FAERS Safety Report 5856046-X (Version None)
Quarter: 2008Q3

REPORT INFORMATION
  Report Type: 
  Country: None (occurrence: None)
  Receive Date: 20080821
  Receipt Date: 20080807
  Transmission Date: 20090109
  Serious: Yes (Hospitalization)
  Sender: FDA-Public Use
  Company Number: 2008S1000247

PATIENT
  Sex: 0

DRUGS (1)
  1. CUBICIN [Suspect]

REACTIONS (1)
  - INTERSTITIAL LUNG DISEASE [None]
